FAERS Safety Report 15891538 (Version 1)
Quarter: 2019Q1

REPORT INFORMATION
  Report Type: Spontaneous
  Country: US (occurrence: US)
  Receive Date: 20190130
  Receipt Date: 20190130
  Transmission Date: 20190417
  Serious: No
  Sender: FDA-Public Use
  Company Number: US-ALLERGAN-1841133US

PATIENT
  Age: 65 Year
  Sex: Female
  Weight: 68.27 kg

DRUGS (6)
  1. VIIBRYD [Suspect]
     Active Substance: VILAZODONE HYDROCHLORIDE
     Dosage: 10 MG, QD
     Route: 065
     Dates: start: 201801, end: 201801
  2. VIIBRYD [Suspect]
     Active Substance: VILAZODONE HYDROCHLORIDE
     Dosage: 20 MG, QD
     Route: 065
     Dates: start: 201712, end: 201801
  3. VIIBRYD [Suspect]
     Active Substance: VILAZODONE HYDROCHLORIDE
     Dosage: 10 MG, QD (FOR 7 DAYS)
     Route: 065
     Dates: start: 201712, end: 201712
  4. SUPPLEMENT [Concomitant]
     Active Substance: UNSPECIFIED INGREDIENT
     Indication: DEPRESSION
     Dosage: UNK
  5. VIIBRYD [Suspect]
     Active Substance: VILAZODONE HYDROCHLORIDE
     Indication: MAJOR DEPRESSION
     Dosage: 10 MG, QD
     Route: 065
     Dates: start: 201807
  6. VIIBRYD [Suspect]
     Active Substance: VILAZODONE HYDROCHLORIDE
     Dosage: 20 MG, QD
     Route: 065
     Dates: start: 201801, end: 201807

REACTIONS (9)
  - Pain in extremity [Recovering/Resolving]
  - Intentional product misuse [Unknown]
  - Poor quality sleep [Recovering/Resolving]
  - Nightmare [Recovering/Resolving]
  - Food craving [Recovering/Resolving]
  - Restless legs syndrome [Recovered/Resolved]
  - Weight increased [Recovering/Resolving]
  - Diarrhoea [Recovered/Resolved]
  - Paranoia [Recovering/Resolving]

NARRATIVE: CASE EVENT DATE: 201712
